FAERS Safety Report 9376295 (Version 1)
Quarter: 2013Q3

REPORT INFORMATION
  Report Type: Spontaneous
  Country: DE (occurrence: DE)
  Receive Date: 20130701
  Receipt Date: 20130701
  Transmission Date: 20140515
  Serious: Yes (Hospitalization)
  Sender: FDA-Public Use
  Company Number: GXKR2013DE002263

PATIENT
  Sex: 0

DRUGS (1)
  1. SIMVAHEXAL [Suspect]
     Indication: HYPERLIPIDAEMIA
     Dosage: 20 MG, UNK
     Route: 048
     Dates: end: 201208

REACTIONS (1)
  - Bile duct stone [Recovering/Resolving]
